FAERS Safety Report 25341650 (Version 1)
Quarter: 2025Q2

REPORT INFORMATION
  Report Type: Spontaneous
  Country: DE (occurrence: DE)
  Receive Date: 20250521
  Receipt Date: 20250521
  Transmission Date: 20250717
  Serious: Yes (Hospitalization, Other)
  Sender: PFIZER
  Company Number: DE-002147023-NVSC2023DE062901

PATIENT
  Sex: Female

DRUGS (3)
  1. METHOTREXATE SODIUM [Suspect]
     Active Substance: METHOTREXATE SODIUM
     Dosage: 5 MG, WEEKLY (5 MG, QW)
     Route: 065
     Dates: start: 202305, end: 202306
  2. RITUXIMAB [Suspect]
     Active Substance: RITUXIMAB
     Route: 042
     Dates: start: 20220427
  3. RITUXIMAB [Suspect]
     Active Substance: RITUXIMAB
     Route: 042
     Dates: start: 20230201

REACTIONS (12)
  - Gait disturbance [Recovered/Resolved]
  - Polyneuropathy [Recovered/Resolved]
  - Rheumatic disorder [Recovered/Resolved]
  - Vascular encephalopathy [Recovered/Resolved]
  - Cardiac failure [Recovered/Resolved]
  - Polymyalgia rheumatica [Recovered/Resolved]
  - Atrial fibrillation [Recovered/Resolved]
  - Pneumocystis test positive [Recovered/Resolved]
  - Interstitial lung disease [Recovered/Resolved]
  - Urinary tract infection [Recovered/Resolved]
  - Arthralgia [Recovered/Resolved]
  - Arthralgia [Recovered/Resolved]

NARRATIVE: CASE EVENT DATE: 20230109
